FAERS Safety Report 8486556 (Version 37)
Quarter: 2016Q2

REPORT INFORMATION
  Report Type: Report from Study
  Country: CA (occurrence: CA)
  Receive Date: 20120402
  Receipt Date: 20160531
  Transmission Date: 20160815
  Serious: Yes (Life-Threatening, Hospitalization, Other)
  Sender: FDA-Public Use
  Company Number: PHHY2012CA016849

PATIENT
  Age: 66 Year
  Sex: Male

DRUGS (4)
  1. SANDOSTATIN LAR DEPOT [Suspect]
     Active Substance: OCTREOTIDE ACETATE
     Indication: DIARRHOEA
  2. SANDOSTATIN [Suspect]
     Active Substance: OCTREOTIDE ACETATE
     Indication: CARCINOID TUMOUR
     Dosage: TID (TO BE CONTINUED 2 WEEKS POST FIRST LAR)
     Route: 058
     Dates: start: 200911, end: 201002
  3. SANDOSTATIN LAR DEPOT [Suspect]
     Active Substance: OCTREOTIDE ACETATE
     Indication: CARCINOID TUMOUR
     Dosage: 10 MG, QMO
     Route: 030
     Dates: start: 20100127
  4. SANDOSTATIN [Suspect]
     Active Substance: OCTREOTIDE ACETATE
     Indication: DIARRHOEA

REACTIONS (47)
  - Thrombosis [Unknown]
  - Dyspnoea [Unknown]
  - Heart rate irregular [Unknown]
  - Bile duct obstruction [Unknown]
  - Throat cancer [Unknown]
  - Blood pressure diastolic decreased [Unknown]
  - Aortic disorder [Unknown]
  - Haematoma [Unknown]
  - Eyelid oedema [Unknown]
  - Pain in extremity [Unknown]
  - Respiratory rate increased [Unknown]
  - Haemorrhage [Unknown]
  - Metastases to small intestine [Unknown]
  - Laryngeal cancer [Unknown]
  - Second primary malignancy [Unknown]
  - Muscle spasms [Unknown]
  - Abdominal pain lower [Recovering/Resolving]
  - Ear disorder [Unknown]
  - Hordeolum [Unknown]
  - Weight increased [Unknown]
  - Electrical burn [Unknown]
  - Asthenia [Unknown]
  - Dysphonia [Unknown]
  - Wound haemorrhage [Unknown]
  - Animal scratch [Unknown]
  - Injection site pain [Unknown]
  - Wound [Unknown]
  - Asthma [Unknown]
  - Gastrointestinal carcinoma [Unknown]
  - Neuralgia [Not Recovered/Not Resolved]
  - Product use issue [Unknown]
  - Feeling abnormal [Unknown]
  - Chromaturia [Unknown]
  - Cholelithiasis [Unknown]
  - Oropharyngeal pain [Not Recovered/Not Resolved]
  - Blood pressure increased [Unknown]
  - Fatigue [Not Recovered/Not Resolved]
  - Dizziness [Unknown]
  - Infection [Unknown]
  - Hernia [Unknown]
  - Pulmonary mass [Unknown]
  - Body temperature decreased [Unknown]
  - Nephrolithiasis [Unknown]
  - Cough [Unknown]
  - Blood pressure systolic increased [Unknown]
  - Vocal cord polyp [Unknown]
  - Nasal congestion [Unknown]

NARRATIVE: CASE EVENT DATE: 200911
